FAERS Safety Report 21637215 (Version 1)
Quarter: 2022Q4

REPORT INFORMATION
  Report Type: Report from Study
  Country: BR (occurrence: None)
  Receive Date: 20221124
  Receipt Date: 20221124
  Transmission Date: 20230113
  Serious: Yes (Other)
  Sender: FDA-Public Use
  Company Number: BR-Merck Healthcare KGaA-9363906

PATIENT
  Age: 65 Year
  Sex: Female

DRUGS (2)
  1. METFORMIN [Suspect]
     Active Substance: METFORMIN HYDROCHLORIDE
     Indication: Product used for unknown indication
     Route: 048
     Dates: start: 2014, end: 202207
  2. METFORMIN [Suspect]
     Active Substance: METFORMIN HYDROCHLORIDE
     Route: 048

REACTIONS (12)
  - Syncope [Recovered/Resolved]
  - Renal impairment [Unknown]
  - Single functional kidney [Unknown]
  - Headache [Recovered/Resolved]
  - Pain in extremity [Recovered/Resolved]
  - Peripheral swelling [Recovered/Resolved]
  - Vision blurred [Unknown]
  - Hypertension [Unknown]
  - Illness [Recovered/Resolved]
  - Dry mouth [Recovered/Resolved]
  - Blood glucose decreased [Unknown]
  - Intentional product use issue [Unknown]
